FAERS Safety Report 11242169 (Version 6)
Quarter: 2015Q4

REPORT INFORMATION
  Report Type: Spontaneous
  Country: CA (occurrence: CA)
  Receive Date: 20150707
  Receipt Date: 20151210
  Transmission Date: 20160304
  Serious: Yes (Hospitalization, Other)
  Sender: FDA-Public Use
  Company Number: CA-ROCHE-1603988

PATIENT
  Age: 60 Year
  Sex: Male

DRUGS (8)
  1. XOLAIR [Suspect]
     Active Substance: OMALIZUMAB
     Indication: ASTHMA
     Route: 058
     Dates: start: 20140724
  2. XOLAIR [Suspect]
     Active Substance: OMALIZUMAB
     Route: 058
     Dates: start: 20150813
  3. TELMISARTAN. [Suspect]
     Active Substance: TELMISARTAN
     Indication: CARDIAC DISORDER
     Route: 065
     Dates: start: 201310
  4. XOLAIR [Suspect]
     Active Substance: OMALIZUMAB
     Route: 058
     Dates: start: 20141211
  5. XOLAIR [Suspect]
     Active Substance: OMALIZUMAB
     Route: 058
     Dates: start: 20141113
  6. XOLAIR [Suspect]
     Active Substance: OMALIZUMAB
     Route: 058
     Dates: start: 20141016
  7. XOLAIR [Suspect]
     Active Substance: OMALIZUMAB
     Route: 058
     Dates: start: 20141030
  8. MORPHINE [Concomitant]
     Active Substance: MORPHINE

REACTIONS (15)
  - Oxygen saturation decreased [Unknown]
  - Oedema peripheral [Unknown]
  - Pain in extremity [Unknown]
  - Malaise [Unknown]
  - Pneumonia [Recovering/Resolving]
  - Pulmonary oedema [Unknown]
  - Blood pressure increased [Not Recovered/Not Resolved]
  - Heart rate increased [Unknown]
  - Myositis [Unknown]
  - Dizziness [Unknown]
  - Body temperature decreased [Unknown]
  - Dyspnoea exertional [Not Recovered/Not Resolved]
  - Arthralgia [Unknown]
  - Muscular weakness [Unknown]
  - Muscle spasms [Unknown]

NARRATIVE: CASE EVENT DATE: 2014
